FAERS Safety Report 7536620-5 (Version None)
Quarter: 2011Q2

REPORT INFORMATION
  Report Type: 
  Country: None (occurrence: None)
  Receive Date: 20110602
  Receipt Date: 20110524
  Transmission Date: 20111010
  Serious: Yes (Death)
  Sender: FDA-Public Use
  Company Number: B0723050A

PATIENT
  Sex: Male

DRUGS (3)
  1. MELPHALAN HYDROCHLORIDE [Suspect]
     Indication: PROSTATE CANCER
     Dosage: CYCLIC /INTRAVENOUS
     Route: 042
  2. STEM CELL TRANSPLANT (FORMULATION UNKNOWN)(STEM CELL TRANSPLANT) [Suspect]
     Indication: PROSTATE CANCER
  3. LENOGRASTIM (FORMULATION UNKNOWN) (LENOGRASTIM) [Suspect]
     Indication: PROSTATE CANCER
     Dosage: /CYCLIC

REACTIONS (2)
  - TOXICITY TO VARIOUS AGENTS [None]
  - NEUTROPENIA [None]
